FAERS Safety Report 8968579 (Version 2)
Quarter: 2013Q1

REPORT INFORMATION
  Report Type: Report from Study
  Country: BE (occurrence: BE)
  Receive Date: 20121217
  Receipt Date: 20130208
  Transmission Date: 20140127
  Serious: Yes (Death)
  Sender: FDA-Public Use
  Company Number: BE-ROCHE-1169323

PATIENT
  Age: 59 Year
  Sex: Male
  Weight: 70 kg

DRUGS (5)
  1. ZELBORAF [Suspect]
     Indication: MALIGNANT MELANOMA
     Route: 048
     Dates: start: 20121015, end: 20121203
  2. DUROGESIC [Concomitant]
     Indication: PAIN
     Route: 062
     Dates: start: 201209
  3. NEXIUM [Concomitant]
     Indication: ULCER
     Route: 048
     Dates: start: 201209
  4. XYZALL [Concomitant]
     Indication: PRURITUS
     Route: 048
     Dates: start: 201209
  5. LERIVON [Concomitant]
     Indication: DEPRESSION
     Route: 048
     Dates: start: 201209

REACTIONS (2)
  - Arrhythmia [Fatal]
  - Renal failure [Fatal]
